FAERS Safety Report 5834970-1 (Version None)
Quarter: 2008Q3

REPORT INFORMATION
  Report Type: 
  Country: None (occurrence: None)
  Receive Date: 20080806
  Receipt Date: 20080502
  Transmission Date: 20090109
  Serious: No
  Sender: FDA-Public Use
  Company Number: US-BAYER-200822744NA

PATIENT
  Age: 68 Year
  Sex: Female

DRUGS (3)
  1. ADALAT [Suspect]
     Indication: DRUG USE FOR UNKNOWN INDICATION
  2. TOPROL-XL [Concomitant]
  3. TRANDATE [Concomitant]

REACTIONS (2)
  - HEART RATE IRREGULAR [None]
  - TINNITUS [None]
